FAERS Safety Report 7213317-2 (Version None)
Quarter: 2010Q4

REPORT INFORMATION
  Report Type: 
  Country: None (occurrence: None)
  Receive Date: 20101229
  Receipt Date: 20101213
  Transmission Date: 20110411
  Serious: Yes (Hospitalization)
  Sender: FDA-Public Use
  Company Number: DSA_44577_2010

PATIENT
  Age: 85 Year
  Sex: Male

DRUGS (12)
  1. DILTIAZEM HYDROCHLORIDE [Suspect]
     Indication: SUPRAVENTRICULAR TACHYCARDIA
     Dosage: (DF)
  2. OXYCODONE HCL [Suspect]
     Indication: BACK PAIN
     Dosage: (15-30 MG EVERY 4 HOURS AS NEEDED)
  3. OXYCODONE HCL [Suspect]
     Indication: MUSCULOSKELETAL CHEST PAIN
     Dosage: (15-30 MG EVERY 4 HOURS AS NEEDED)
  4. FENTANYL [Suspect]
     Indication: BACK PAIN
     Dosage: (150 ?G 1X/72 HOURS TRANSDERMAL), (INTRAVENOUS DRIP)
  5. FENTANYL [Suspect]
     Indication: MUSCULOSKELETAL CHEST PAIN
     Dosage: (150 ?G 1X/72 HOURS TRANSDERMAL), (INTRAVENOUS DRIP)
  6. COLACE [Concomitant]
  7. RANITIDINE [Concomitant]
  8. PREVACID [Concomitant]
  9. SENNA /00142201/ [Concomitant]
  10. FLOMAX /01280302/ [Concomitant]
  11. GEMCITABINE [Concomitant]
  12. VINORELBINE [Concomitant]

REACTIONS (18)
  - AGGRESSION [None]
  - AGITATION [None]
  - BLOOD CREATININE INCREASED [None]
  - BLOOD UREA DECREASED [None]
  - CLOSTRIDIUM DIFFICILE COLITIS [None]
  - COMMUNICATION DISORDER [None]
  - CONFUSIONAL STATE [None]
  - DEHYDRATION [None]
  - DELIRIUM [None]
  - DRUG INTERACTION [None]
  - ELECTROCARDIOGRAM QT PROLONGED [None]
  - HAEMOGLOBIN DECREASED [None]
  - MIOSIS [None]
  - NARCOTIC INTOXICATION [None]
  - PNEUMONIA [None]
  - SOMNOLENCE [None]
  - SUPRAVENTRICULAR TACHYCARDIA [None]
  - URINARY TRACT INFECTION [None]
